FAERS Safety Report 19967635 (Version 2)
Quarter: 2024Q2

REPORT INFORMATION
  Report Type: Spontaneous
  Country: GB (occurrence: GB)
  Receive Date: 20211019
  Receipt Date: 20240403
  Transmission Date: 20240716
  Serious: Yes (Disabling)
  Sender: FDA-Public Use
  Company Number: None

PATIENT
  Age: 73 Year
  Sex: Female

DRUGS (1)
  1. ARIPIPRAZOLE [Suspect]
     Active Substance: ARIPIPRAZOLE
     Indication: Hallucination, auditory
     Dosage: 5 MILLIGRAM
     Route: 048
     Dates: end: 20210928

REACTIONS (2)
  - Movement disorder [Not Recovered/Not Resolved]
  - Product prescribing error [Unknown]
